FAERS Safety Report 7681567-7 (Version None)
Quarter: 2011Q3

REPORT INFORMATION
  Report Type: 
  Country: None (occurrence: None)
  Receive Date: 20110812
  Receipt Date: 20110810
  Transmission Date: 20111222
  Serious: Yes (Death)
  Sender: FDA-Public Use
  Company Number: PHHY2011US05628

PATIENT
  Sex: Male
  Weight: 73.016 kg

DRUGS (3)
  1. TRANSFUSIONS [Concomitant]
     Dosage: 15 TIMES 02 U EACH
  2. EXJADE [Suspect]
     Indication: LYMPHOPROLIFERATIVE DISORDER
     Dosage: 500 MG, DAILY
     Route: 048
  3. EXJADE [Suspect]
     Indication: IRON OVERLOAD
     Dosage: 750 MG, DAILY
     Route: 048
     Dates: start: 20091201, end: 20100201

REACTIONS (5)
  - MYELODYSPLASTIC SYNDROME TRANSFORMATION [None]
  - ASTHENIA [None]
  - BLOOD CREATINE INCREASED [None]
  - DECREASED APPETITE [None]
  - ACUTE MYELOID LEUKAEMIA [None]
